FAERS Safety Report 6241781-4 (Version None)
Quarter: 2009Q2

REPORT INFORMATION
  Report Type: 
  Country: None (occurrence: None)
  Receive Date: 20090623
  Receipt Date: 20090611
  Transmission Date: 20091009
  Serious: Yes (Hospitalization)
  Sender: FDA-Public Use
  Company Number: GB-MYLANLABS-2009S1010486

PATIENT
  Age: 65 Year
  Sex: Female
  Weight: 114 kg

DRUGS (5)
  1. VERAPAMIL [Suspect]
     Indication: ATRIAL FIBRILLATION
     Route: 048
     Dates: start: 20090512, end: 20090513
  2. ASPIRIN [Concomitant]
     Indication: ANTICOAGULANT THERAPY
     Route: 048
  3. BISOPROLOL [Concomitant]
     Indication: BLOOD PRESSURE INCREASED
     Route: 048
  4. LORATADINE [Concomitant]
     Indication: HYPERSENSITIVITY
     Route: 048
  5. SIMVASTATIN [Concomitant]
     Indication: HYPERCHOLESTEROLAEMIA
     Route: 048

REACTIONS (5)
  - CHEST PAIN [None]
  - DIZZINESS [None]
  - DYSPNOEA [None]
  - HYPOTENSION [None]
  - VOMITING [None]
